FAERS Safety Report 26075342 (Version 2)
Quarter: 2025Q4

REPORT INFORMATION
  Report Type: Spontaneous
  Country: US (occurrence: US)
  Receive Date: 20251121
  Receipt Date: 20251205
  Transmission Date: 20260118
  Serious: No
  Sender: MYLAN
  Company Number: US-MYLANLABS-2025M1097429

PATIENT
  Age: 28 Year
  Sex: Female
  Weight: 54.43 kg

DRUGS (4)
  1. XULANE [Suspect]
     Active Substance: ETHINYL ESTRADIOL\NORELGESTROMIN
     Indication: Contraception
     Dosage: 150 PER 35 MICROGRAM
     Dates: start: 20251101
  2. XULANE [Suspect]
     Active Substance: ETHINYL ESTRADIOL\NORELGESTROMIN
     Dosage: 150 PER 35 MICROGRAM
     Route: 062
     Dates: start: 20251101
  3. XULANE [Suspect]
     Active Substance: ETHINYL ESTRADIOL\NORELGESTROMIN
     Dosage: 150 PER 35 MICROGRAM
     Route: 062
     Dates: start: 20251101
  4. XULANE [Suspect]
     Active Substance: ETHINYL ESTRADIOL\NORELGESTROMIN
     Dosage: 150 PER 35 MICROGRAM
     Dates: start: 20251101

REACTIONS (5)
  - Application site pruritus [Not Recovered/Not Resolved]
  - Application site erythema [Not Recovered/Not Resolved]
  - Application site irritation [Not Recovered/Not Resolved]
  - Application site hypersensitivity [Unknown]
  - Inappropriate schedule of product administration [Unknown]

NARRATIVE: CASE EVENT DATE: 20251103
